FAERS Safety Report 15935917 (Version 2)
Quarter: 2025Q3

REPORT INFORMATION
  Report Type: Report from Study
  Country: US (occurrence: US)
  Receive Date: 20190208
  Receipt Date: 20250715
  Transmission Date: 20251020
  Serious: Yes (Other)
  Sender: AUROBINDO
  Company Number: US-AUROBINDO-AUR-APL-2019-004832

PATIENT
  Age: 26 Year
  Sex: Male

DRUGS (9)
  1. DEXAMETHASONE [Suspect]
     Active Substance: DEXAMETHASONE
     Indication: Neurocysticercosis
     Route: 065
     Dates: start: 20050101, end: 20050606
  2. DEXAMETHASONE [Suspect]
     Active Substance: DEXAMETHASONE
     Route: 065
     Dates: start: 20100316, end: 20110501
  3. DEXAMETHASONE [Suspect]
     Active Substance: DEXAMETHASONE
     Route: 065
     Dates: start: 20081001, end: 20090401
  4. DEXAMETHASONE [Suspect]
     Active Substance: DEXAMETHASONE
     Route: 065
     Dates: start: 20080603
  5. BACTRIM [Concomitant]
     Active Substance: SULFAMETHOXAZOLE\TRIMETHOPRIM
     Indication: Antifungal prophylaxis
     Route: 065
  6. METHOTREXATE [Concomitant]
     Active Substance: METHOTREXATE
     Indication: Neurocysticercosis
     Route: 065
  7. PRAZIQUANTEL [Concomitant]
     Active Substance: PRAZIQUANTEL
     Indication: Neurocysticercosis
     Route: 065
  8. ALBENDAZOLE [Concomitant]
     Active Substance: ALBENDAZOLE
     Indication: Neurocysticercosis
     Route: 065
  9. ETANERCEPT [Concomitant]
     Active Substance: ETANERCEPT
     Indication: Neurocysticercosis
     Route: 065

REACTIONS (3)
  - Osteonecrosis [Unknown]
  - Steroid diabetes [Unknown]
  - Myopathy [Unknown]
